FAERS Safety Report 9467916 (Version 1)
Quarter: 2013Q3

REPORT INFORMATION
  Report Type: Spontaneous
  Country: US (occurrence: US)
  Receive Date: 20130821
  Receipt Date: 20130821
  Transmission Date: 20140515
  Serious: Yes (Death)
  Sender: FDA-Public Use
  Company Number: US-PFIZER INC-2013240981

PATIENT
  Sex: Male

DRUGS (3)
  1. XANAX [Suspect]
     Indication: SUBSTANCE USE
     Dosage: UNK
  2. OXYCONTIN [Suspect]
     Indication: SUBSTANCE USE
     Dosage: UNK
  3. COCAINE [Suspect]
     Indication: SUBSTANCE USE
     Dosage: UNK

REACTIONS (2)
  - Overdose [Fatal]
  - Death [Fatal]
